FAERS Safety Report 20223857 (Version 1)
Quarter: 2021Q4

REPORT INFORMATION
  Report Type: Spontaneous
  Country: DE (occurrence: DE)
  Receive Date: 20211223
  Receipt Date: 20211223
  Transmission Date: 20220303
  Serious: Yes (Hospitalization)
  Sender: FDA-Public Use
  Company Number: DE-ADRED-07488-01

PATIENT
  Age: 79 Year
  Sex: Male
  Weight: 78 kg

DRUGS (8)
  1. ASPIRIN [Suspect]
     Active Substance: ASPIRIN
     Dosage: 100 MG, QD (0-1-0-0)
     Route: 048
  2. ENOXAPARIN SODIUM [Suspect]
     Active Substance: ENOXAPARIN SODIUM
     Dosage: 40 MG, 0-0-1-0, PRE-FILLED SYRINGES
     Route: 058
  3. RAMIPRIL [Concomitant]
     Active Substance: RAMIPRIL
     Dosage: 5 MG, QD (0-0-1-0)
     Route: 048
  4. HYDROCHLOROTHIAZIDE\RAMIPRIL [Concomitant]
     Active Substance: HYDROCHLOROTHIAZIDE\RAMIPRIL
     Dosage: 25/5 MG, 1-0-0-0, TABLETS
     Route: 048
  5. AMLODIPINE [Concomitant]
     Active Substance: AMLODIPINE BESYLATE
     Dosage: 10 MG, 0-0-1-0, TABLETS
     Route: 048
  6. METAMIZOLE [Concomitant]
     Active Substance: METAMIZOLE
     Dosage: 500 MG, REQUIREMENT, DROPS
     Route: 048
  7. ALLOPURINOL [Concomitant]
     Active Substance: ALLOPURINOL
     Dosage: 100 MG, 0-0-1-0, TABLETS
     Route: 048
  8. BISOPROLOL [Concomitant]
     Active Substance: BISOPROLOL
     Dosage: 5 MG, 1-0-0-0, TABLETS
     Route: 048

REACTIONS (4)
  - Haematuria [Recovering/Resolving]
  - Pollakiuria [Recovering/Resolving]
  - Nocturia [Recovering/Resolving]
  - Dysuria [Recovering/Resolving]
